FAERS Safety Report 4516261-4 (Version None)
Quarter: 2004Q4

REPORT INFORMATION
  Report Type: 
  Country: None (occurrence: None)
  Receive Date: 20041129
  Receipt Date: 20041118
  Transmission Date: 20050328
  Serious: Yes (Death)
  Sender: FDA-Public Use
  Company Number: 2004-11-1222

PATIENT
  Age: 27 Year
  Sex: Female

DRUGS (1)
  1. TEMODAR [Suspect]
     Indication: BRAIN NEOPLASM
     Dosage: ORAL
     Route: 048
     Dates: start: 20040101, end: 20040101

REACTIONS (4)
  - BRAIN NEOPLASM [None]
  - MALIGNANT NEOPLASM PROGRESSION [None]
  - NEOPLASM RECURRENCE [None]
  - NON-HODGKIN'S LYMPHOMA [None]
